FAERS Safety Report 8342743-3 (Version None)
Quarter: 2012Q2

REPORT INFORMATION
  Report Type: 
  Country: None (occurrence: None)
  Receive Date: 20120503
  Receipt Date: 20110726
  Transmission Date: 20120825
  Serious: Yes (Life-Threatening, Hospitalization, Other)
  Sender: FDA-Public Use
  Company Number: CZ-023333

PATIENT
  Age: 68 Year
  Sex: Female

DRUGS (2)
  1. (OFATUMUMAB) [Suspect]
     Indication: CHRONIC LYMPHOCYTIC LEUKAEMIA
     Dosage: INJECTION INTRAVENOUS (NOT OTHERWISE SPECIFIED)
     Route: 042
     Dates: start: 20110413
  2. (CHLORAMBUCIL) [Suspect]
     Indication: CHRONIC LYMPHOCYTIC LEUKAEMIA
     Dosage: 10MGM2 DAYS 1-7 EVERY 28 DAYS ORAL
     Route: 048
     Dates: start: 20110413

REACTIONS (5)
  - NEOPLASM PROGRESSION [None]
  - HYPERCALCAEMIA [None]
  - BLOOD ALKALINE PHOSPHATASE INCREASED [None]
  - CHRONIC LYMPHOCYTIC LEUKAEMIA [None]
  - OSTEOPOROSIS [None]
